FAERS Safety Report 7952695-3 (Version None)
Quarter: 2011Q4

REPORT INFORMATION
  Report Type: 
  Country: None (occurrence: None)
  Receive Date: 20111201
  Receipt Date: 20111124
  Transmission Date: 20120403
  Serious: Yes (Death)
  Sender: FDA-Public Use
  Company Number: IT-CELGENEUS-083-21880-11113539

PATIENT

DRUGS (1)
  1. REVLIMID [Suspect]
     Indication: LYMPHOMA
     Route: 048

REACTIONS (1)
  - INFECTION [None]
